FAERS Safety Report 10364427 (Version 1)
Quarter: 2014Q3

REPORT INFORMATION
  Report Type: Spontaneous
  Country: US (occurrence: None)
  Receive Date: 20140804
  Receipt Date: 20140804
  Transmission Date: 20150326
  Serious: Yes (Other)
  Sender: FDA-Public Use
  Company Number: None

PATIENT
  Age: 33 Year
  Sex: Female
  Weight: 65.77 kg

DRUGS (1)
  1. PRENATAL VITAMIN [Suspect]
     Active Substance: VITAMINS
     Indication: PREGNANCY
     Dosage: 1 CAPSULE ONCE DAILY TAKEN BY MOUTH
     Route: 048
     Dates: start: 20140719, end: 20140731

REACTIONS (3)
  - Eyelid oedema [None]
  - Drug hypersensitivity [None]
  - Urticaria [None]

NARRATIVE: CASE EVENT DATE: 20140731
